FAERS Safety Report 6972166-0 (Version None)
Quarter: 2010Q3

REPORT INFORMATION
  Report Type: 
  Country: None (occurrence: None)
  Receive Date: 20100909
  Receipt Date: 20100805
  Transmission Date: 20110219
  Serious: No
  Sender: FDA-Public Use
  Company Number: US-BIOGENIDEC-2010BI031026

PATIENT
  Age: 58 Year
  Sex: Female

DRUGS (2)
  1. TYSABRI [Suspect]
     Indication: MULTIPLE SCLEROSIS
     Route: 042
     Dates: start: 20060830, end: 20091005
  2. TYSABRI [Suspect]
     Route: 042
     Dates: start: 20091101

REACTIONS (2)
  - GAIT DISTURBANCE [None]
  - VULVOVAGINAL DRYNESS [None]
